FAERS Safety Report 11660318 (Version 1)
Quarter: 2015Q4

REPORT INFORMATION
  Report Type: Spontaneous
  Country: US (occurrence: US)
  Receive Date: 20151026
  Receipt Date: 20151026
  Transmission Date: 20160304
  Serious: No
  Sender: FDA-Public Use
  Company Number: US-MEDA-2011040039

PATIENT
  Age: 76 Year
  Sex: Female
  Weight: 75 kg

DRUGS (7)
  1. TENORMIN [Concomitant]
     Active Substance: ATENOLOL
     Route: 048
  2. NIASPAN [Concomitant]
     Active Substance: NIACIN
     Route: 048
  3. ASTEPRO [Suspect]
     Active Substance: AZELASTINE HYDROCHLORIDE
     Indication: RHINITIS ALLERGIC
     Dates: start: 20110407, end: 20110408
  4. LASIX [Concomitant]
     Active Substance: FUROSEMIDE
     Route: 048
  5. ASTEPRO [Suspect]
     Active Substance: AZELASTINE HYDROCHLORIDE
     Indication: UPPER-AIRWAY COUGH SYNDROME
     Dates: start: 20110407, end: 20110408
  6. IMDUR [Concomitant]
     Active Substance: ISOSORBIDE MONONITRATE
     Route: 048
  7. ACIPHEX [Concomitant]
     Active Substance: RABEPRAZOLE SODIUM
     Route: 048

REACTIONS (6)
  - Dysphonia [Unknown]
  - Hypersensitivity [Recovering/Resolving]
  - Chest discomfort [Recovering/Resolving]
  - Swollen tongue [Recovered/Resolved]
  - Dyspnoea [Recovering/Resolving]
  - Glossodynia [Unknown]

NARRATIVE: CASE EVENT DATE: 20110407
